FAERS Safety Report 24861351 (Version 3)
Quarter: 2025Q1

REPORT INFORMATION
  Report Type: Report from Study
  Country: JP (occurrence: JP)
  Receive Date: 20250120
  Receipt Date: 20250203
  Transmission Date: 20250409
  Serious: Yes (Hospitalization)
  Sender: JOHNSON AND JOHNSON
  Company Number: JP-JNJFOC-20240867508

PATIENT
  Age: 73 Year
  Sex: Male

DRUGS (6)
  1. ERLEADA [Suspect]
     Active Substance: APALUTAMIDE
     Indication: Prostate cancer
     Dates: start: 20240820, end: 20241114
  2. RINDERON [Concomitant]
     Indication: Eczema
     Dosage: DOSE UNKNOWN
     Route: 061
     Dates: start: 202208
  3. INFLUENZA VIRUS VACCINE [Concomitant]
     Active Substance: INFLUENZA VIRUS VACCINE
     Indication: Antiviral prophylaxis
     Route: 065
     Dates: start: 20241125, end: 20241125
  4. MOVICOL [Concomitant]
     Active Substance: POLYETHYLENE GLYCOL 3350\POTASSIUM CHLORIDE\SODIUM BICARBONATE\SODIUM CHLORIDE
     Indication: Product used for unknown indication
  5. INSULINA [INSULIN NOS] [Concomitant]
     Indication: Diabetes mellitus
     Route: 058
  6. JUVELA C [Concomitant]
     Indication: Dry skin
     Route: 061

REACTIONS (9)
  - Eczema [Recovering/Resolving]
  - Pruritus [Not Recovered/Not Resolved]
  - Weight decreased [Not Recovered/Not Resolved]
  - Blister [Recovered/Resolved]
  - Off label use [Unknown]
  - Pyrexia [Recovering/Resolving]
  - Penile erythema [Recovered/Resolved]
  - Erythema [Recovered/Resolved]
  - Alopecia [Not Recovered/Not Resolved]

NARRATIVE: CASE EVENT DATE: 20240101
